FAERS Safety Report 9628099 (Version 1)
Quarter: 2013Q4

REPORT INFORMATION
  Report Type: Spontaneous
  Country: US (occurrence: US)
  Receive Date: 20131017
  Receipt Date: 20131017
  Transmission Date: 20140711
  Serious: Yes (Other)
  Sender: FDA-Public Use
  Company Number: US-AMGEN-USASP2013072560

PATIENT
  Age: 62 Year
  Sex: Female
  Weight: 56.69 kg

DRUGS (9)
  1. ENBREL [Suspect]
     Indication: PRODUCT USED FOR UNKNOWN INDICATION
     Dosage: 50 MG, QWK
     Route: 058
  2. LISINOPRIL [Concomitant]
     Dosage: 5 MG, UNK
  3. BYSTOLIC [Concomitant]
     Dosage: 10 MG, UNK
  4. CALCIUM +D                         /00944201/ [Concomitant]
     Dosage: UNK
  5. VITAMIN D3 [Concomitant]
     Dosage: 1000 UNIT, UNK
  6. FISH OIL [Concomitant]
     Dosage: 1200 MG, UNK
  7. FUROSEMIDE [Concomitant]
     Dosage: 20 MG, UNK
  8. POTASSIUM CHLORIDE [Concomitant]
     Dosage: 10 MEQ, CR
  9. ALEVE [Concomitant]
     Dosage: 220 MG, UNK

REACTIONS (1)
  - Respiratory tract infection [Unknown]
